FAERS Safety Report 4877005-X (Version None)
Quarter: 2005Q4

REPORT INFORMATION
  Report Type: 
  Country: None (occurrence: None)
  Receive Date: 20051206
  Receipt Date: 20050914
  Transmission Date: 20060501
  Serious: No
  Sender: FDA-Public Use
  Company Number: USA0509108155

PATIENT
  Age: 62 Year
  Sex: Female

DRUGS (4)
  1. CYMBALTA [Suspect]
     Indication: INSOMNIA
     Dosage: 60 MG DAY
     Dates: start: 20050801
  2. ESTROGEN NOS [Concomitant]
  3. SYNTHROID [Concomitant]
  4. MEDICATION FOR CHOLESTEROL [Concomitant]

REACTIONS (9)
  - CHILLS [None]
  - CONSTIPATION [None]
  - FATIGUE [None]
  - HEADACHE [None]
  - HOT FLUSH [None]
  - HYPERHIDROSIS [None]
  - INCREASED APPETITE [None]
  - NAUSEA [None]
  - SOMNOLENCE [None]
